FAERS Safety Report 17460738 (Version 1)
Quarter: 2020Q1

REPORT INFORMATION
  Report Type: Spontaneous
  Country: US (occurrence: US)
  Receive Date: 20200213
  Receipt Date: 20200213
  Transmission Date: 20200409
  Serious: No
  Sender: FDA-Public Use
  Company Number: None

PATIENT
  Age: 7 Year
  Sex: Male
  Weight: 24.49 kg

DRUGS (4)
  1. VITAMIN D3 [Concomitant]
     Active Substance: CHOLECALCIFEROL
  2. FERROUS SULFATE. [Concomitant]
     Active Substance: FERROUS SULFATE
  3. CHARLOTTE^S WEB STANLEY BROTHERS 17MG OLIVE OIL 30ML (CBD) [Suspect]
     Active Substance: CANNABIDIOL\HERBALS
     Dosage: ?          QUANTITY:1ML PER SERVING ;OTHER ROUTE:MOTHER UNDER TONGUE?
     Dates: start: 20191109, end: 20191110
  4. GLYCOPYRROLATE. [Concomitant]
     Active Substance: GLYCOPYRROLATE

REACTIONS (4)
  - Vomiting [None]
  - Malaise [None]
  - Drooling [None]
  - Weight decreased [None]

NARRATIVE: CASE EVENT DATE: 20191107
